FAERS Safety Report 5394478-7 (Version None)
Quarter: 2007Q3

REPORT INFORMATION
  Report Type: 
  Country: None (occurrence: None)
  Receive Date: 20070718
  Receipt Date: 20061106
  Transmission Date: 20080115
  Serious: Yes (Hospitalization, Other)
  Sender: FDA-Public Use
  Company Number: 2006077188

PATIENT
  Age: 64 Year
  Sex: Male
  Weight: 136.5327 kg

DRUGS (2)
  1. CELEBREX [Suspect]
     Indication: KNEE OPERATION
     Dosage: 200 MG (100 MG, 2 IN 1 D); ORAL
     Route: 048
     Dates: start: 20000228, end: 20010815
  2. CELEBREX [Suspect]
     Indication: RHEUMATOID ARTHRITIS
     Dosage: 200 MG (100 MG, 2 IN 1 D); ORAL
     Route: 048
     Dates: start: 20000228, end: 20010815

REACTIONS (1)
  - CEREBROVASCULAR ACCIDENT [None]
